FAERS Safety Report 7789027-X (Version None)
Quarter: 2011Q3

REPORT INFORMATION
  Report Type: 
  Country: None (occurrence: None)
  Receive Date: 20110930
  Receipt Date: 20110922
  Transmission Date: 20111222
  Serious: Yes (Hospitalization)
  Sender: FDA-Public Use
  Company Number: GB-ALEXION PHARMACEUTICALS INC.-A201101465

PATIENT
  Sex: Male

DRUGS (2)
  1. SOLIRIS [Suspect]
     Indication: PAROXYSMAL NOCTURNAL HAEMOGLOBINURIA
     Dosage: UNK
     Route: 042
     Dates: start: 20081201
  2. SOLIRIS [Suspect]
     Dosage: 900 MG, Q2W, FORTNIGHTLY
     Route: 042
     Dates: start: 20090102

REACTIONS (1)
  - LUNG NEOPLASM MALIGNANT [None]
